FAERS Safety Report 12222089 (Version 1)
Quarter: 2016Q1

REPORT INFORMATION
  Report Type: Spontaneous
  Country: None (occurrence: IT)
  Receive Date: 20160330
  Receipt Date: 20160330
  Transmission Date: 20160526
  Serious: Yes (Other)
  Sender: FDA-Public Use
  Company Number: IT-MERCK KGAA-1049938

PATIENT

DRUGS (1)
  1. NOVOTHYROX [Suspect]
     Active Substance: LEVOTHYROXINE SODIUM

REACTIONS (6)
  - Alopecia [None]
  - Arthralgia [None]
  - Onychoclasis [None]
  - Depression [None]
  - Abdominal distension [None]
  - Weight increased [None]
